FAERS Safety Report 13515362 (Version 2)
Quarter: 2018Q2

REPORT INFORMATION
  Report Type: Spontaneous
  Country: US (occurrence: US)
  Receive Date: 20170504
  Receipt Date: 20180427
  Transmission Date: 20180711
  Serious: No
  Sender: FDA-Public Use
  Company Number: US-BAUSCH-BL-2016-032216

PATIENT
  Age: 54 Year
  Sex: Female
  Weight: 122.58 kg

DRUGS (4)
  1. LEVOTHYROXINE. [Concomitant]
     Active Substance: LEVOTHYROXINE
     Indication: HYPOTHYROIDISM
     Dosage: (0.2)
     Route: 048
     Dates: start: 201602
  2. ZOVIRAX [Suspect]
     Active Substance: ACYCLOVIR
     Indication: UNEVALUABLE EVENT
     Route: 061
     Dates: start: 201607, end: 201607
  3. ZYCLARA [Suspect]
     Active Substance: IMIQUIMOD
     Indication: ACTINIC KERATOSIS
     Dosage: APPLIED DAILY AT BEDTIME TO THE AFFECTED AREA
     Route: 061
     Dates: start: 201606, end: 201607
  4. ACYCLOVIR. [Suspect]
     Active Substance: ACYCLOVIR
     Indication: UNEVALUABLE EVENT
     Route: 048
     Dates: start: 201607, end: 201607

REACTIONS (7)
  - Skin irritation [Recovering/Resolving]
  - Drug ineffective [Recovering/Resolving]
  - Chapped lips [Recovering/Resolving]
  - Erythema [Recovering/Resolving]
  - Skin disorder [Recovering/Resolving]
  - Dry skin [Recovering/Resolving]
  - Dermatitis contact [Recovering/Resolving]

NARRATIVE: CASE EVENT DATE: 201607
